FAERS Safety Report 6809426-X (Version None)
Quarter: 2010Q2

REPORT INFORMATION
  Report Type: 
  Country: None (occurrence: None)
  Receive Date: 20100625
  Receipt Date: 20100610
  Transmission Date: 20101027
  Serious: Yes (Hospitalization)
  Sender: FDA-Public Use
  Company Number: A-CH2010-37276

PATIENT
  Age: 3 Month
  Sex: Male

DRUGS (5)
  1. TRACLEER [Suspect]
     Indication: EXTREMITY NECROSIS
     Dosage: 4 MG/KG, QD, ORAL
     Route: 048
     Dates: start: 20090101
  2. ASPIRIN [Concomitant]
  3. HEPARIN [Concomitant]
  4. NIFEDIPINE [Concomitant]
  5. CORTICOSTEROIDS [Concomitant]

REACTIONS (5)
  - CONDITION AGGRAVATED [None]
  - DISEASE PROGRESSION [None]
  - EXTREMITY NECROSIS [None]
  - FINGER AMPUTATION [None]
  - RESPIRATORY DISTRESS [None]
